FAERS Safety Report 8769505 (Version 1)
Quarter: 2012Q4

REPORT INFORMATION
  Report Type: 
  Country: BR (occurrence: BR)
  Receive Date: 20120905
  Receipt Date: 20120905
  Transmission Date: 20130627
  Serious: Yes (Life-Threatening, Other)
  Sender: FDA-Public Use
  Company Number: PHHY2012BR075777

PATIENT
  Sex: Female

DRUGS (8)
  1. XOLAIR [Suspect]
     Indication: ASTHMA
     Dosage: 2 ampoules each 30 days
     Dates: start: 201201
  2. PREDNISONE [Suspect]
     Indication: DYSPNOEA
  3. ALENIA [Suspect]
     Indication: DYSPNOEA
     Dosage: 400 ug, UNK
  4. FORASEQ [Suspect]
     Indication: DYSPNOEA
  5. SALBUTAMOL [Suspect]
     Indication: DYSPNOEA
  6. GARDENAL ^AVENTIS^ [Concomitant]
  7. NIFEDIPINE [Concomitant]
     Indication: CARDIAC DISORDER
  8. AMITRIPTYLINE [Concomitant]

REACTIONS (4)
  - Feeling abnormal [Unknown]
  - Dyspnoea [Recovered/Resolved]
  - Weight increased [Unknown]
  - Oedema peripheral [Not Recovered/Not Resolved]
